FAERS Safety Report 13114243 (Version 1)
Quarter: 2017Q1

REPORT INFORMATION
  Report Type: Spontaneous
  Country: US (occurrence: US)
  Receive Date: 20170113
  Receipt Date: 20170113
  Transmission Date: 20170428
  Serious: No
  Sender: FDA-Public Use
  Company Number: US-PFIZER INC-2017013726

PATIENT
  Age: 9 Year
  Sex: Male
  Weight: 29.48 kg

DRUGS (3)
  1. QUILLIVANT XR [Suspect]
     Active Substance: METHYLPHENIDATE HYDROCHLORIDE
     Dosage: 4.5 MG, 1X/DAY (ONCE IN THE MORNING)
     Dates: start: 2015
  2. QUILLIVANT XR [Suspect]
     Active Substance: METHYLPHENIDATE HYDROCHLORIDE
     Dosage: UNK, (^4 DOSES IN THE MORNING AND 3 AND HALF/3.5 MG IN THE AFTERNOON^)
     Dates: start: 201601
  3. QUILLIVANT XR [Suspect]
     Active Substance: METHYLPHENIDATE HYDROCHLORIDE
     Indication: ATTENTION DEFICIT/HYPERACTIVITY DISORDER
     Dosage: UNK
     Dates: start: 2013

REACTIONS (7)
  - Irritability [Recovered/Resolved]
  - Drug effect decreased [Not Recovered/Not Resolved]
  - Screaming [Recovered/Resolved]
  - Personality change [Recovered/Resolved]
  - Abnormal behaviour [Recovered/Resolved]
  - Disturbance in attention [Recovered/Resolved]
  - Aggression [Recovered/Resolved]

NARRATIVE: CASE EVENT DATE: 2015
